FAERS Safety Report 24128231 (Version 1)
Quarter: 2024Q3

REPORT INFORMATION
  Report Type: Spontaneous
  Country: GB (occurrence: GB)
  Receive Date: 20240723
  Receipt Date: 20240723
  Transmission Date: 20241017
  Serious: Yes (Other)
  Sender: JOHNSON AND JOHNSON
  Company Number: None

PATIENT
  Age: 59 Year
  Sex: Male

DRUGS (1)
  1. MACITENTAN [Suspect]
     Active Substance: MACITENTAN
     Indication: Product used for unknown indication
     Dosage: EXP 06/28
     Route: 065

REACTIONS (5)
  - Deafness unilateral [Unknown]
  - Urticaria [Unknown]
  - Lethargy [Unknown]
  - Ear inflammation [Unknown]
  - Headache [Unknown]
